FAERS Safety Report 4499993-6 (Version None)
Quarter: 2004Q4

REPORT INFORMATION
  Report Type: 
  Country: None (occurrence: None)
  Receive Date: 20041110
  Receipt Date: 20041025
  Transmission Date: 20050328
  Serious: Yes (Hospitalization)
  Sender: FDA-Public Use
  Company Number: TRP_0027_2004

PATIENT
  Age: 55 Year
  Sex: Female

DRUGS (2)
  1. RIBASPHERE [Suspect]
     Indication: HEPATITIS C
     Dosage: 800 MG QDAY PO
     Route: 048
     Dates: start: 20040822
  2. PEG-INTRON [Suspect]
     Indication: HEPATITIS C
     Dates: start: 20040822

REACTIONS (4)
  - BLOOD POTASSIUM ABNORMAL [None]
  - BLOOD SODIUM ABNORMAL [None]
  - DISEASE PROGRESSION [None]
  - MUSCLE CRAMP [None]
